FAERS Safety Report 9410562 (Version 1)
Quarter: 2013Q3

REPORT INFORMATION
  Report Type: Report from Study
  Country: CA (occurrence: CA)
  Receive Date: 20130719
  Receipt Date: 20130719
  Transmission Date: 20140515
  Serious: Yes (Other)
  Sender: FDA-Public Use
  Company Number: CA-JNJFOC-20130709591

PATIENT
  Age: 25 Year
  Sex: Female
  Weight: 92 kg

DRUGS (2)
  1. REMICADE [Suspect]
     Indication: COLITIS ULCERATIVE
     Route: 042
     Dates: start: 20130206
  2. REMICADE [Suspect]
     Indication: COLITIS ULCERATIVE
     Route: 042
     Dates: start: 20130512

REACTIONS (4)
  - Inner ear disorder [Unknown]
  - Hypertension [Recovering/Resolving]
  - Palpitations [Unknown]
  - Nausea [Unknown]
